FAERS Safety Report 12709561 (Version 1)
Quarter: 2016Q3

REPORT INFORMATION
  Report Type: Spontaneous
  Country: US (occurrence: US)
  Receive Date: 20160901
  Receipt Date: 20160901
  Transmission Date: 20161109
  Serious: No
  Sender: FDA-Public Use
  Company Number: US-RELYPSA-RLY2016000159

PATIENT
  Age: 68 Year
  Sex: Female

DRUGS (13)
  1. VELTASSA [Suspect]
     Active Substance: PATIROMER
     Indication: CHRONIC KIDNEY DISEASE
  2. NOVOLOG [Concomitant]
     Active Substance: INSULIN ASPART
  3. HUMALOG [Concomitant]
     Active Substance: INSULIN LISPRO
  4. UROCIT-K (10) [Concomitant]
  5. GLIPIZIDE. [Concomitant]
     Active Substance: GLIPIZIDE
  6. METOPROLOL SUCCINATE (ER) [Concomitant]
  7. VELTASSA [Suspect]
     Active Substance: PATIROMER
     Indication: HYPERKALAEMIA
     Dosage: 8.4 G, QD
     Route: 048
     Dates: start: 20160220
  8. ALLOPURINOL. [Concomitant]
     Active Substance: ALLOPURINOL
  9. NORVASC [Concomitant]
     Active Substance: AMLODIPINE BESYLATE
  10. SIMVASTATIN. [Concomitant]
     Active Substance: SIMVASTATIN
  11. SODIUM BICARBONATE. [Concomitant]
     Active Substance: SODIUM BICARBONATE
  12. LISINOPRIL. [Concomitant]
     Active Substance: LISINOPRIL
  13. VITAMIN D                          /00107901/ [Concomitant]
     Active Substance: ERGOCALCIFEROL

REACTIONS (1)
  - Constipation [Unknown]

NARRATIVE: CASE EVENT DATE: 201602
